FAERS Safety Report 5008788-6 (Version None)
Quarter: 2006Q2

REPORT INFORMATION
  Report Type: 
  Country: None (occurrence: None)
  Receive Date: 20060404
  Receipt Date: 20051101
  Transmission Date: 20061013
  Serious: No
  Sender: FDA-Public Use
  Company Number: US0511112365

PATIENT
  Age: 62 Year
  Sex: Female

DRUGS (3)
  1. CYMBALTA [Suspect]
     Indication: DEPRESSION
     Dosage: 60 MG, DAILY (1/D), ORAL
     Route: 048
     Dates: start: 20050401
  2. NEURONTIN [Concomitant]
  3. VITAMIN [Concomitant]

REACTIONS (4)
  - DRY SKIN [None]
  - MIDDLE INSOMNIA [None]
  - PAIN IN EXTREMITY [None]
  - RASH PAPULAR [None]
